FAERS Safety Report 25166732 (Version 1)
Quarter: 2025Q2

REPORT INFORMATION
  Report Type: Spontaneous
  Country: PL (occurrence: PL)
  Receive Date: 20250407
  Receipt Date: 20250407
  Transmission Date: 20250716
  Serious: Yes (Life-Threatening)
  Sender: ACCORD
  Company Number: None

PATIENT
  Age: 60 Year
  Sex: Female
  Weight: 67 kg

DRUGS (6)
  1. PACLITAXEL [Suspect]
     Active Substance: PACLITAXEL
     Indication: Product used for unknown indication
     Dates: start: 20210705, end: 20210705
  2. CORHYDRON [Concomitant]
     Dates: start: 20210705, end: 20210705
  3. CLEMASTINE [Concomitant]
     Active Substance: CLEMASTINE
     Dates: start: 20210705, end: 20210705
  4. FAMOGAST [Concomitant]
     Dates: start: 20210705, end: 20210705
  5. DEXAMETHASONE [Concomitant]
     Active Substance: DEXAMETHASONE
     Dates: start: 20210705, end: 20210705
  6. EPOETIN BETA [Concomitant]
     Active Substance: ERYTHROPOIETIN
     Dates: start: 20210705, end: 20210705

REACTIONS (7)
  - Loss of consciousness [Recovered/Resolved]
  - Pallor [Recovered/Resolved]
  - Pulse absent [Recovered/Resolved]
  - Cardiac massage [Recovered/Resolved]
  - Dyspnoea [Recovered/Resolved]
  - Asthenia [Recovered/Resolved]
  - Unresponsive to stimuli [Recovered/Resolved]

NARRATIVE: CASE EVENT DATE: 20210705
